FAERS Safety Report 9741459 (Version 6)
Quarter: 2015Q1

REPORT INFORMATION
  Report Type: Report from Study
  Country: CA (occurrence: CA)
  Receive Date: 20131209
  Receipt Date: 20150217
  Transmission Date: 20150721
  Serious: Yes (Hospitalization, Other)
  Sender: FDA-Public Use
  Company Number: PHHY2013CA143533

PATIENT
  Age: 50 Year
  Sex: Female

DRUGS (2)
  1. CLOZARIL [Suspect]
     Active Substance: CLOZAPINE
     Indication: PRODUCT USED FOR UNKNOWN INDICATION
     Dosage: UNK
     Route: 048
     Dates: start: 20000712
  2. CLOZARIL [Suspect]
     Active Substance: CLOZAPINE
     Dosage: UNK
     Route: 048
     Dates: start: 20141120, end: 20150123

REACTIONS (3)
  - Neutrophil count decreased [Unknown]
  - Haemorrhage [Unknown]
  - White blood cell count decreased [Unknown]

NARRATIVE: CASE EVENT DATE: 20131206
